FAERS Safety Report 4496576-9 (Version None)
Quarter: 2004Q4

REPORT INFORMATION
  Report Type: 
  Country: None (occurrence: None)
  Receive Date: 20041105
  Receipt Date: 20041022
  Transmission Date: 20050328
  Serious: Yes (Death)
  Sender: FDA-Public Use
  Company Number: 2004S1003175

PATIENT
  Age: 63 Year
  Sex: Male

DRUGS (10)
  1. CLOZAPINE [Suspect]
     Indication: SCHIZOPHRENIA, PARANOID TYPE
     Dosage: 150 MG, QD, ORAL
     Route: 048
     Dates: start: 20040701
  2. OLANZAPINE [Concomitant]
  3. RISPERIDONE [Concomitant]
  4. MULTIVITAMINS WITH MINERALS [Concomitant]
  5. VITAMIN C [Concomitant]
  6. ZINC SULFATE [Concomitant]
  7. PANTOPRAZOLE [Concomitant]
  8. ACETAMINOPHEN [Concomitant]
  9. HYDROXYZINE HCL [Concomitant]
  10. PIPERACILLIN/TAZOBACTRIM [Concomitant]

REACTIONS (3)
  - ANAEMIA [None]
  - IMPAIRED HEALING [None]
  - SEPSIS [None]
